FAERS Safety Report 4622977-1 (Version None)
Quarter: 2005Q1

REPORT INFORMATION
  Report Type: 
  Country: None (occurrence: None)
  Receive Date: 20050329
  Receipt Date: 20050317
  Transmission Date: 20050727
  Serious: No
  Sender: FDA-Public Use
  Company Number: 2005-126485-NL

PATIENT
  Age: 24 Month
  Sex: Male

DRUGS (4)
  1. DEXAMETHASONE [Suspect]
     Indication: ACUTE LYMPHOCYTIC LEUKAEMIA
  2. THIOGUANINE [Suspect]
  3. METHOTREXATE [Concomitant]
  4. VINCRISTINE [Concomitant]

REACTIONS (12)
  - ADENOVIRAL HEPATITIS [None]
  - COAGULOPATHY [None]
  - DIARRHOEA [None]
  - EPIDERMAL NECROSIS [None]
  - HEPATIC FAILURE [None]
  - HEPATOSPLENOMEGALY [None]
  - PANCYTOPENIA [None]
  - PYREXIA [None]
  - RASH [None]
  - RASH VESICULAR [None]
  - THERAPY NON-RESPONDER [None]
  - VENOOCCLUSIVE LIVER DISEASE [None]
